FAERS Safety Report 6612361-3 (Version None)
Quarter: 2010Q1

REPORT INFORMATION
  Report Type: 
  Country: None (occurrence: None)
  Receive Date: 20100303
  Receipt Date: 20091202
  Transmission Date: 20100710
  Serious: No
  Sender: FDA-Public Use
  Company Number: US-BAYER-201012246BCC

PATIENT
  Age: 59 Year
  Sex: Female

DRUGS (18)
  1. ALEVE (CAPLET) [Suspect]
     Indication: ARTHRALGIA
     Dosage: TOTAL DAILY DOSE: 880 MG  UNIT DOSE: 220 MG
     Route: 048
     Dates: start: 20091202
  2. NITROGLYCERIN [Concomitant]
     Route: 065
  3. NEXIUM [Concomitant]
     Route: 065
  4. INSULIN [Concomitant]
     Route: 065
  5. APRIA [Concomitant]
     Route: 065
  6. GABAPENTIN [Concomitant]
     Route: 065
  7. NABUMETONE [Concomitant]
     Route: 065
  8. POTASSIUM [Concomitant]
     Route: 065
  9. DETROL [Concomitant]
     Route: 065
  10. ASACOL [Concomitant]
     Route: 065
  11. ALPRAZOLAM [Concomitant]
     Route: 065
  12. TYLENOL W/ CODEINE NO. 3 [Concomitant]
     Route: 065
  13. LISINOPRIL [Concomitant]
     Route: 065
  14. FUROSEMIDE [Concomitant]
     Route: 065
  15. BABY ASPIRIN [Concomitant]
     Route: 065
  16. CILOSTAZOL [Concomitant]
     Route: 065
  17. CRESTOR [Concomitant]
     Route: 065
  18. METOPROLOL TARTRATE [Concomitant]
     Route: 065

REACTIONS (1)
  - NO ADVERSE EVENT [None]
